FAERS Safety Report 9785096 (Version 3)
Quarter: 2014Q1

REPORT INFORMATION
  Report Type: Report from Study
  Country: DE (occurrence: DE)
  Receive Date: 20131227
  Receipt Date: 20140106
  Transmission Date: 20141002
  Serious: Yes (Death)
  Sender: FDA-Public Use
  Company Number: DE-BEH-2013038245

PATIENT
  Age: 69 Year
  Sex: Female
  Weight: 63 kg

DRUGS (2)
  1. PRIVIGEN [Suspect]
     Indication: CHRONIC LYMPHOCYTIC LEUKAEMIA
     Route: 042
     Dates: start: 20110214
  2. PRIVIGEN [Suspect]
     Dosage: DOSAGE RATE: MIN. 100, MAX.100 ML/MIN.
     Route: 042
     Dates: start: 20130328, end: 20130328

REACTIONS (1)
  - Chronic lymphocytic leukaemia [Fatal]
